FAERS Safety Report 8016267-7 (Version None)
Quarter: 2011Q4

REPORT INFORMATION
  Report Type: 
  Country: None (occurrence: None)
  Receive Date: 20111230
  Receipt Date: 20111222
  Transmission Date: 20120403
  Serious: Yes (Hospitalization, Disabling)
  Sender: FDA-Public Use
  Company Number: US-MERCK-1109USA01921

PATIENT
  Age: 52 Year
  Sex: Female
  Weight: 95 kg

DRUGS (11)
  1. FOSAMAX [Suspect]
     Indication: OSTEOPOROSIS
     Route: 048
     Dates: start: 20020302
  2. MULTI-VITAMINS [Concomitant]
     Route: 065
     Dates: start: 19950101
  3. ALENDRONATE SODIUM [Suspect]
     Indication: OSTEOPOROSIS
     Route: 048
     Dates: start: 20081030, end: 20090807
  4. ALENDRONATE SODIUM [Suspect]
     Indication: OSTEOPOROSIS PROPHYLAXIS
     Route: 048
     Dates: start: 20081030, end: 20090807
  5. FOSAMAX [Suspect]
     Indication: OSTEOPOROSIS PROPHYLAXIS
     Route: 048
     Dates: start: 20020302
  6. AMARYL [Concomitant]
     Indication: DIABETES MELLITUS
     Route: 065
     Dates: start: 20010101
  7. GLUCOPHAGE [Concomitant]
     Indication: DIABETES MELLITUS
     Route: 065
     Dates: start: 20010101
  8. ACTOS [Concomitant]
     Route: 065
     Dates: start: 19950101
  9. AVANDIA [Concomitant]
     Route: 065
     Dates: start: 19950101
  10. GLIMEPIRIDE [Concomitant]
     Indication: DIABETES MELLITUS
     Route: 065
     Dates: start: 20010101
  11. VERAPAMIL [Concomitant]
     Indication: HYPERTENSION
     Route: 065
     Dates: start: 20010411, end: 20100419

REACTIONS (24)
  - HAEMOGLOBIN DECREASED [None]
  - PELVIC MASS [None]
  - INTERVERTEBRAL DISC DEGENERATION [None]
  - TOOTH EXTRACTION [None]
  - SPONDYLOLISTHESIS [None]
  - BACK PAIN [None]
  - CARDIAC FAILURE CONGESTIVE [None]
  - HAEMATOMA [None]
  - CATARACT [None]
  - GASTROINTESTINAL TRACT ADENOMA [None]
  - UTERINE LEIOMYOMA [None]
  - ARTHRALGIA [None]
  - DIABETIC RETINOPATHY [None]
  - CARCINOID TUMOUR [None]
  - INTERVERTEBRAL DISC PROTRUSION [None]
  - GLAUCOMA [None]
  - FEMUR FRACTURE [None]
  - BLOOD CHOLESTEROL INCREASED [None]
  - PYREXIA [None]
  - RETINAL DISORDER [None]
  - LUMBAR RADICULOPATHY [None]
  - RECTAL POLYP [None]
  - NORMOCHROMIC NORMOCYTIC ANAEMIA [None]
  - FALL [None]
